FAERS Safety Report 9838639 (Version 2)
Quarter: 2014Q2

REPORT INFORMATION
  Report Type: Spontaneous
  Country: US (occurrence: None)
  Receive Date: 20131205
  Receipt Date: 20140416
  Transmission Date: 20141212
  Serious: Yes (Hospitalization, Other)
  Sender: FDA-Public Use
  Company Number: 163-POMAL-13110840

PATIENT
  Age: 64 Year
  Sex: Female

DRUGS (16)
  1. POMALYST [Suspect]
     Indication: PLASMA CELL MYELOMA
     Route: 048
     Dates: start: 20130715
  2. AGGRENOX (ASASANTIN) [Concomitant]
  3. LISINOPRIL/HCTZ (PRINZIDE) [Concomitant]
  4. VITAMIN B12 (CYANOCOBALAMIN) [Concomitant]
  5. VITAMIN D (ERGOCALCIFEROL) [Concomitant]
  6. ASPIRINE (ACETYLSALICYLIC ACID) [Concomitant]
  7. GABAPENTIN [Concomitant]
  8. COUMADIN (WARFARIN SODIUM) [Concomitant]
  9. METFORMIN [Concomitant]
  10. ACYCLOVIR (ACICLOVIR) [Concomitant]
  11. SYNTHROID (LEVOTHYROXINE SODIUM) [Concomitant]
  12. POTASSIUM [Concomitant]
  13. CELEBREX (CELECOXIB) [Concomitant]
  14. FISH OIL [Concomitant]
  15. COLACE (DOCUSATE SODIUM) [Concomitant]
  16. CALCIUM [Concomitant]

REACTIONS (3)
  - Upper respiratory tract infection [None]
  - Full blood count decreased [None]
  - Oedema peripheral [None]
